FAERS Safety Report 4479259-0 (Version None)
Quarter: 2004Q4

REPORT INFORMATION
  Report Type: 
  Country: None (occurrence: None)
  Receive Date: 20041015
  Receipt Date: 20041007
  Transmission Date: 20050328
  Serious: Yes (Life-Threatening)
  Sender: FDA-Public Use
  Company Number: 2004AP03826

PATIENT
  Age: 50 Year
  Sex: Female

DRUGS (6)
  1. MEROPEN [Suspect]
     Indication: PNEUMONIA
     Dosage: 0.5 G BID IVD
     Route: 041
     Dates: start: 20040426, end: 20040508
  2. TOMIRON [Suspect]
     Indication: PYREXIA
     Dates: start: 20040422, end: 20040423
  3. ACETAMINOPHEN [Suspect]
     Indication: PYREXIA
     Dosage: 300 MG DAILY PO
     Route: 048
     Dates: start: 20040422, end: 20040423
  4. NO MATCH [Suspect]
     Indication: PNEUMONIA
     Dosage: 1 G BID IVD
     Route: 041
     Dates: start: 20040423, end: 20040426
  5. NO MATCH [Suspect]
     Indication: PNEUMONIA
     Dosage: 1 G BID IVD
     Route: 041
     Dates: start: 20040529, end: 20040512
  6. CLINDAMYCIN HCL [Suspect]
     Indication: PNEUMONIA
     Dosage: 0.6 G BID IVD
     Route: 041
     Dates: start: 20040426, end: 20040508

REACTIONS (5)
  - ACUTE RESPIRATORY FAILURE [None]
  - GASTRITIS [None]
  - INTERSTITIAL LUNG DISEASE [None]
  - LYMPHOCYTE STIMULATION TEST POSITIVE [None]
  - PRURITUS [None]
